FAERS Safety Report 8980911 (Version 1)
Quarter: 2012Q4

REPORT INFORMATION
  Report Type: Report from Study
  Country: CA (occurrence: CA)
  Receive Date: 20121221
  Receipt Date: 20121221
  Transmission Date: 20130627
  Serious: Yes (Hospitalization, Other)
  Sender: FDA-Public Use
  Company Number: CA-ABBOTT-12P-028-1023397-00

PATIENT
  Age: 54 None
  Sex: Female

DRUGS (3)
  1. BIAXIN [Suspect]
     Indication: COUGH
     Route: 048
     Dates: start: 201210, end: 201210
  2. BIAXIN [Suspect]
     Indication: LOWER RESPIRATORY TRACT INFECTION
  3. HUMIRA [Concomitant]
     Indication: RHEUMATOID ARTHRITIS
     Route: 058

REACTIONS (7)
  - Loss of consciousness [Recovered/Resolved]
  - Bronchitis [Unknown]
  - Asthenia [Unknown]
  - Vomiting [Unknown]
  - Drug ineffective [Unknown]
  - Cough [Not Recovered/Not Resolved]
  - Lower respiratory tract infection [Not Recovered/Not Resolved]
